FAERS Safety Report 7390057-0 (Version None)
Quarter: 2011Q2

REPORT INFORMATION
  Report Type: 
  Country: None (occurrence: None)
  Receive Date: 20110401
  Receipt Date: 20101025
  Transmission Date: 20111010
  Serious: Yes (Other)
  Sender: FDA-Public Use
  Company Number: US-BAYER-201033881NA

PATIENT
  Sex: Female
  Weight: 79 kg

DRUGS (5)
  1. OCELLA [Suspect]
     Indication: CONTRACEPTION
     Dosage: UNK
     Route: 048
     Dates: start: 20060101, end: 20091101
  2. YAZ [Suspect]
     Indication: PRODUCT USED FOR UNKNOWN INDICATION
     Route: 048
  3. OCELLA [Suspect]
     Indication: OVARIAN CYST
  4. YASMIN [Suspect]
     Indication: CONTRACEPTION
     Dosage: UNK
     Route: 048
     Dates: start: 20060101, end: 20091101
  5. YASMIN [Suspect]
     Indication: OVARIAN CYST

REACTIONS (3)
  - INJURY [None]
  - GALLBLADDER DISORDER [None]
  - PAIN [None]
